FAERS Safety Report 4872961-8 (Version None)
Quarter: 2006Q1

REPORT INFORMATION
  Report Type: 
  Country: None (occurrence: None)
  Receive Date: 20060105
  Receipt Date: 20050513
  Transmission Date: 20060701
  Serious: No
  Sender: FDA-Public Use
  Company Number: US-BRISTOL-MYERS SQUIBB COMPANY-12968343

PATIENT
  Age: 65 Year
  Sex: Female
  Weight: 75 kg

DRUGS (4)
  1. SERZONE [Suspect]
     Indication: DEPRESSION
     Dates: start: 20050401
  2. LIPITOR [Concomitant]
  3. PLAVIX [Concomitant]
  4. BLOOD PRESSURE PILL [Concomitant]

REACTIONS (4)
  - DIZZINESS [None]
  - DYSARTHRIA [None]
  - FATIGUE [None]
  - MEMORY IMPAIRMENT [None]
